FAERS Safety Report 24385007 (Version 1)
Quarter: 2024Q4

REPORT INFORMATION
  Report Type: Spontaneous
  Country: CA (occurrence: CA)
  Receive Date: 20241001
  Receipt Date: 20241001
  Transmission Date: 20250115
  Serious: Yes (Other)
  Sender: FRESENIUS KABI
  Company Number: CA-FreseniusKabi-FK202414257

PATIENT
  Age: 3 Year
  Sex: Male

DRUGS (10)
  1. KETOROLAC [Suspect]
     Active Substance: KETOROLAC TROMETHAMINE
     Indication: Procedural pain
     Route: 042
  2. CHILDRENS ADVIL [Suspect]
     Active Substance: IBUPROFEN
     Indication: Procedural pain
     Dosage: FOA-SUSPENSION ORAL
     Route: 048
  3. ACETAMINOPHEN [Concomitant]
     Active Substance: ACETAMINOPHEN
     Indication: Product used for unknown indication
     Dosage: FOA-NOT SPECIFIED
     Route: 048
  4. FENTANYL [Concomitant]
     Active Substance: FENTANYL
     Indication: Product used for unknown indication
     Dosage: FOA-NOT SPECIFIED
     Route: 045
  5. MORPHINE [Concomitant]
     Active Substance: MORPHINE
     Indication: Product used for unknown indication
     Route: 042
  6. MORPHINE [Concomitant]
     Active Substance: MORPHINE
     Dosage: FOA-NOT SPECIFIED
     Route: 042
  7. ONDANSETRON [Concomitant]
     Active Substance: ONDANSETRON
     Indication: Product used for unknown indication
     Dosage: FOA-NOT SPECIFIED
     Route: 042
  8. PHYTONADIONE [Concomitant]
     Active Substance: PHYTONADIONE
     Indication: Product used for unknown indication
     Dosage: FOA-NOT SPECIFIED
     Route: 042
  9. PIPERACILLIN SODIUM\TAZOBACTAM SODIUM [Concomitant]
     Active Substance: PIPERACILLIN SODIUM\TAZOBACTAM SODIUM
     Indication: Product used for unknown indication
     Route: 065
  10. SACCHARATED IRON OXIDE [Concomitant]
     Active Substance: IRON SUCROSE
     Indication: Product used for unknown indication
     Route: 042

REACTIONS (9)
  - Abdominal distension [Recovered/Resolved]
  - Abdominal tenderness [Recovered/Resolved]
  - Diarrhoea [Recovered/Resolved]
  - Discoloured vomit [Recovered/Resolved]
  - Erythema [Recovered/Resolved]
  - Faeces discoloured [Recovered/Resolved]
  - Gastric ulcer [Recovered/Resolved]
  - Gastritis erosive [Recovered/Resolved]
  - Haemoglobin decreased [Recovered/Resolved]
